FAERS Safety Report 12384465 (Version 1)
Quarter: 2016Q2

REPORT INFORMATION
  Report Type: Report from Study
  Country: US (occurrence: US)
  Receive Date: 20160519
  Receipt Date: 20160519
  Transmission Date: 20160815
  Serious: No
  Sender: FDA-Public Use
  Company Number: US-009507513-1605USA003600

PATIENT
  Sex: Male

DRUGS (3)
  1. ALOXI [Concomitant]
     Active Substance: PALONOSETRON HYDROCHLORIDE
     Dosage: UNK
  2. EMEND [Suspect]
     Active Substance: APREPITANT
     Indication: PROPHYLAXIS OF NAUSEA AND VOMITING
     Dosage: 1 CAP DAILY FOR 3 DAYS AS DIRECTED
     Route: 048
     Dates: start: 201604, end: 201604
  3. CISPLATIN. [Concomitant]
     Active Substance: CISPLATIN
     Dosage: UNK, WEEKLY

REACTIONS (1)
  - Dysphagia [Not Recovered/Not Resolved]

NARRATIVE: CASE EVENT DATE: 2016
